FAERS Safety Report 22892380 (Version 2)
Quarter: 2023Q4

REPORT INFORMATION
  Report Type: Spontaneous
  Country: FR (occurrence: FR)
  Receive Date: 20230901
  Receipt Date: 20231018
  Transmission Date: 20240109
  Serious: Yes (Hospitalization, Other)
  Sender: FDA-Public Use
  Company Number: FR-CELLTRION INC.-2023FR017188

PATIENT

DRUGS (27)
  1. RITUXIMAB [Suspect]
     Active Substance: RITUXIMAB
     Indication: Diffuse large B-cell lymphoma stage II
     Dosage: FIRST-LINE TREATMENT AND SECOND LINE THERAP
     Route: 065
     Dates: start: 2019
  2. RITUXIMAB [Suspect]
     Active Substance: RITUXIMAB
     Indication: Diffuse large B-cell lymphoma stage II
     Dosage: SECOND LINE THERAPY
     Route: 065
  3. CYCLOPHOSPHAMIDE [Suspect]
     Active Substance: CYCLOPHOSPHAMIDE
     Indication: Diffuse large B-cell lymphoma stage II
     Dosage: UNK (START DATE:19-MAY-2021)
     Route: 065
     Dates: start: 20210519
  4. CYCLOPHOSPHAMIDE [Suspect]
     Active Substance: CYCLOPHOSPHAMIDE
     Indication: Myelodysplastic syndrome
     Dosage: 500 MILLIGRAM/SQ. METER FIRST-LINE TREATMENT; AT
     Route: 065
     Dates: start: 2019
  5. METHYLPREDNISOLONE [Suspect]
     Active Substance: METHYLPREDNISOLONE
     Indication: Diffuse large B-cell lymphoma stage II
     Dosage: UNK
     Route: 065
     Dates: start: 2020
  6. PREDNISONE [Suspect]
     Active Substance: PREDNISONE
     Indication: Diffuse large B-cell lymphoma stage II
     Dosage: FIRST-LINE TREATMENT
     Route: 065
     Dates: start: 2019
  7. ETOPOSIDE [Suspect]
     Active Substance: ETOPOSIDE
     Indication: Diffuse large B-cell lymphoma stage II
     Dosage: UNK
     Route: 065
     Dates: start: 2020
  8. FLUDARABINE [Suspect]
     Active Substance: FLUDARABINE PHOSPHATE
     Indication: Diffuse large B-cell lymphoma stage II
     Dosage: 30 MG/M2
     Route: 065
  9. DOXORUBICIN [Suspect]
     Active Substance: DOXORUBICIN
     Indication: Diffuse large B-cell lymphoma stage II
     Dosage: FIRST-LINE TREATMENT
     Route: 065
     Dates: start: 2019
  10. DEXAMETHASONE [Suspect]
     Active Substance: DEXAMETHASONE
     Indication: Diffuse large B-cell lymphoma stage II
     Dosage: 2 CYCLES OF SECOND-LINE TREATMENT
     Route: 065
  11. CYTARABINE [Suspect]
     Active Substance: CYTARABINE
     Indication: Diffuse large B-cell lymphoma stage II
     Dosage: 2 CYCLES OF SECOND-LINE TREATMENT
     Route: 065
  12. CISPLATIN [Suspect]
     Active Substance: CISPLATIN
     Indication: Diffuse large B-cell lymphoma stage II
     Dosage: 2 CYCLES OF SECOND-LINE TREATMENT
     Route: 065
  13. VINCRISTINE [Suspect]
     Active Substance: VINCRISTINE
     Indication: Diffuse large B-cell lymphoma stage II
     Dosage: FIRST-LINE TREATMENT
     Route: 065
     Dates: start: 2019
  14. AXICABTAGENE CILOLEUCEL [Suspect]
     Active Substance: AXICABTAGENE CILOLEUCEL
     Indication: Diffuse large B-cell lymphoma stage II
     Dosage: UNK (START DATE:05-MAY-2020)
     Route: 065
     Dates: start: 20200505
  15. CYTARABINE [Concomitant]
     Active Substance: CYTARABINE
     Dosage: UNK
     Dates: start: 2020
  16. TOCILIZUMAB [Concomitant]
     Active Substance: TOCILIZUMAB
     Indication: Cytokine release syndrome
     Dosage: UNK
     Dates: start: 2020
  17. HUMAN RED BLOOD CELL [Concomitant]
     Active Substance: HUMAN RED BLOOD CELL
     Dosage: UNK
     Dates: start: 2020
  18. CYCLOPHOSPHAMIDE [Concomitant]
     Active Substance: CYCLOPHOSPHAMIDE
     Indication: Diffuse large B-cell lymphoma stage II
  19. ETOPOSIDE [Concomitant]
     Active Substance: ETOPOSIDE
     Indication: Diffuse large B-cell lymphoma stage II
     Dosage: ESHAP REGIMEN
  20. PREDNISONE [Concomitant]
     Active Substance: PREDNISONE
     Indication: Diffuse large B-cell lymphoma stage II
  21. DOXORUBICIN [Concomitant]
     Active Substance: DOXORUBICIN
     Indication: Diffuse large B-cell lymphoma stage II
  22. METHYLPREDNISOLONE [Concomitant]
     Active Substance: METHYLPREDNISOLONE
     Indication: Diffuse large B-cell lymphoma stage II
     Dosage: ESHAP REGIMEN
  23. CLOFARABINE [Concomitant]
     Active Substance: CLOFARABINE
     Dosage: UNK
     Dates: start: 2020
  24. VINCRISTINE [Concomitant]
     Active Substance: VINCRISTINE
     Indication: Diffuse large B-cell lymphoma stage II
  25. CYTARABINE [Concomitant]
     Active Substance: CYTARABINE
     Indication: Diffuse large B-cell lymphoma stage II
     Dosage: SECOND LINE THERAPY (ESHAP REGIMEN)
  26. CISPLATIN [Concomitant]
     Active Substance: CISPLATIN
     Indication: Diffuse large B-cell lymphoma stage II
     Dosage: SECOND LINE THERAPY (ESHAP REGIMEN)
  27. FLUDARABINE [Concomitant]
     Active Substance: FLUDARABINE PHOSPHATE
     Indication: Diffuse large B-cell lymphoma stage II

REACTIONS (4)
  - Myelodysplastic syndrome [Unknown]
  - Cytokine release syndrome [Recovered/Resolved]
  - Drug ineffective [Unknown]
  - Disease progression [Recovered/Resolved]

NARRATIVE: CASE EVENT DATE: 20200101
